FAERS Safety Report 18627238 (Version 1)
Quarter: 2020Q4

REPORT INFORMATION
  Report Type: Spontaneous
  Country: US (occurrence: US)
  Receive Date: 20201216
  Receipt Date: 20201216
  Transmission Date: 20210114
  Serious: Yes (Life-Threatening, Hospitalization, Other)
  Sender: FDA-Public Use
  Company Number: None

PATIENT
  Age: 74 Year
  Sex: Male
  Weight: 74 kg

DRUGS (1)
  1. HEPARIN SODIUM, PORCINE [Suspect]
     Active Substance: HEPARIN SODIUM
     Indication: THROMBOSIS PROPHYLAXIS
     Dosage: ?          OTHER STRENGTH:5000 UNT/ML;?
     Route: 058
     Dates: start: 20200909, end: 20200914

REACTIONS (2)
  - Thrombocytopenia [None]
  - Heparin-induced thrombocytopenia test positive [None]

NARRATIVE: CASE EVENT DATE: 20200914
